FAERS Safety Report 10955977 (Version 2)
Quarter: 2015Q2

REPORT INFORMATION
  Report Type: Spontaneous
  Country: US (occurrence: US)
  Receive Date: 20150326
  Receipt Date: 20150526
  Transmission Date: 20150821
  Serious: No
  Sender: FDA-Public Use
  Company Number: US-JNJFOC-20130107386

PATIENT

DRUGS (2)
  1. ETRAVIRINE [Suspect]
     Active Substance: ETRAVIRINE
     Indication: DRUG LEVEL
     Dosage: FOR 11-14 DAYS
     Route: 048
  2. BOCEPREVIR [Interacting]
     Active Substance: BOCEPREVIR
     Indication: DRUG LEVEL
     Dosage: FOR 11 TO 14 DAYS
     Route: 065

REACTIONS (5)
  - Insomnia [Unknown]
  - Anxiety [Unknown]
  - Nervousness [Unknown]
  - Energy increased [Unknown]
  - Drug interaction [Unknown]
